FAERS Safety Report 4971839-9 (Version None)
Quarter: 2006Q2

REPORT INFORMATION
  Report Type: 
  Country: None (occurrence: None)
  Receive Date: 20060412
  Receipt Date: 20060412
  Transmission Date: 20061013
  Serious: Yes (Other)
  Sender: FDA-Public Use
  Company Number: None

PATIENT
  Age: 42 Year
  Sex: Female

DRUGS (1)
  1. PAXIL [Suspect]
     Indication: ANXIETY
     Dosage: 30 MG   DAILY   ORALLY
     Route: 048
     Dates: start: 20060101

REACTIONS (12)
  - ANGER [None]
  - CHILLS [None]
  - CONDITION AGGRAVATED [None]
  - CRYING [None]
  - FATIGUE [None]
  - FEAR [None]
  - GASTRIC DISORDER [None]
  - IMPAIRED WORK ABILITY [None]
  - MOOD SWINGS [None]
  - MUSCLE CONTRACTIONS INVOLUNTARY [None]
  - THINKING ABNORMAL [None]
  - TREMOR [None]
